FAERS Safety Report 4818363-1 (Version None)
Quarter: 2005Q4

REPORT INFORMATION
  Report Type: 
  Country: None (occurrence: None)
  Receive Date: 20051031
  Receipt Date: 20051018
  Transmission Date: 20060501
  Serious: Yes (Other)
  Sender: FDA-Public Use
  Company Number: 2005144219

PATIENT
  Age: 47 Year
  Sex: Female
  Weight: 78.4723 kg

DRUGS (4)
  1. EPIRUBICIN [Suspect]
     Indication: BREAST CANCER
     Dosage: INTRAVENOUS
     Route: 042
     Dates: start: 20050825
  2. FLUOROURACIL [Suspect]
     Indication: BREAST CANCER
     Dosage: INTRAVENOUS
     Route: 042
     Dates: start: 20050825
  3. CYCLOPHOSPHAMIDE [Suspect]
     Indication: BREAST CANCER
     Dosage: INTRAVENOUS
     Route: 042
     Dates: start: 20050825
  4. COUMADIN [Concomitant]

REACTIONS (31)
  - BURNING SENSATION [None]
  - CHEST WALL MASS [None]
  - COGNITIVE DISORDER [None]
  - COMMUNICATION DISORDER [None]
  - DEVICE FAILURE [None]
  - DIZZINESS [None]
  - DRUG ADMINISTRATION ERROR [None]
  - DYSARTHRIA [None]
  - ERYTHEMA [None]
  - IATROGENIC INJURY [None]
  - INFUSION RELATED REACTION [None]
  - INFUSION SITE BRUISING [None]
  - INFUSION SITE EXTRAVASATION [None]
  - INFUSION SITE PAIN [None]
  - INJECTION SITE DISCOLOURATION [None]
  - INSOMNIA [None]
  - LOCAL SWELLING [None]
  - NAUSEA [None]
  - NERVE INJURY [None]
  - OEDEMA PERIPHERAL [None]
  - PALLOR [None]
  - SCAR [None]
  - SHOCK [None]
  - SHOULDER PAIN [None]
  - SKIN DISCOLOURATION [None]
  - SOMNOLENCE [None]
  - SWELLING [None]
  - VASCULAR RUPTURE [None]
  - VISION BLURRED [None]
  - VOMITING [None]
  - WRONG TECHNIQUE IN DRUG USAGE PROCESS [None]
